FAERS Safety Report 11536930 (Version 1)
Quarter: 2015Q3

REPORT INFORMATION
  Report Type: Spontaneous
  Country: US (occurrence: None)
  Receive Date: 20150921
  Receipt Date: 20150921
  Transmission Date: 20151125
  Serious: Yes (Life-Threatening, Hospitalization)
  Sender: FDA-Public Use
  Company Number: None

PATIENT
  Age: 71 Year
  Sex: Female
  Weight: 86.18 kg

DRUGS (11)
  1. OMEGA-3 ACIDS [Concomitant]
     Active Substance: OMEGA-3 FATTY ACIDS
  2. PROBIOTIC [Concomitant]
     Active Substance: PROBIOTICS NOS
  3. BIOTIN [Concomitant]
     Active Substance: BIOTIN
  4. COENZYME [Concomitant]
     Active Substance: UBIDECARENONE
  5. XARELTO [Concomitant]
     Active Substance: RIVAROXABAN
  6. OSMOPREP [Suspect]
     Active Substance: SODIUM PHOSPHATE, DIBASIC, ANHYDROUS\SODIUM PHOSPHATE, MONOBASIC, MONOHYDRATE
     Indication: COLONOSCOPY
     Dosage: 32 PILLS 4 EVERY 15 MINUTES
     Route: 048
     Dates: start: 20150826, end: 20150826
  7. CRESTOR [Concomitant]
     Active Substance: ROSUVASTATIN CALCIUM
  8. IRON [Concomitant]
     Active Substance: IRON
  9. VITAMIN D [Concomitant]
     Active Substance: CHOLECALCIFEROL
  10. ZOLOFT [Concomitant]
     Active Substance: SERTRALINE HYDROCHLORIDE
  11. SYNTHROID [Concomitant]
     Active Substance: LEVOTHYROXINE SODIUM

REACTIONS (10)
  - Heart rate increased [None]
  - Blood magnesium decreased [None]
  - Atrial fibrillation [None]
  - Back pain [None]
  - Blood potassium decreased [None]
  - Headache [None]
  - Dehydration [None]
  - Acute kidney injury [None]
  - Feeling abnormal [None]
  - Blood pressure decreased [None]

NARRATIVE: CASE EVENT DATE: 20150827
